FAERS Safety Report 4683746-X (Version None)
Quarter: 2005Q2

REPORT INFORMATION
  Report Type: 
  Country: None (occurrence: None)
  Receive Date: 20050602
  Receipt Date: 20050401
  Transmission Date: 20051028
  Serious: No
  Sender: FDA-Public Use
  Company Number: USA050494760

PATIENT
  Sex: Male

DRUGS (6)
  1. CYMBALTA [Suspect]
     Indication: ANXIETY
     Dosage: 30 MG/D
     Dates: start: 20050331
  2. METHADONE HCL [Concomitant]
  3. PRAVACHOL [Concomitant]
  4. NORVASC [Concomitant]
  5. PROTONIX [Concomitant]
  6. TETRACYCLINE [Concomitant]

REACTIONS (2)
  - DISTURBANCE IN ATTENTION [None]
  - SOMNOLENCE [None]
